FAERS Safety Report 16782117 (Version 1)
Quarter: 2019Q3

REPORT INFORMATION
  Report Type: Other
  Country: IT (occurrence: IT)
  Receive Date: 20190906
  Receipt Date: 20190906
  Transmission Date: 20191005
  Serious: Yes (Hospitalization)
  Sender: FDA-Public Use
  Company Number: IT-SERVIER-S19009061

PATIENT

DRUGS (19)
  1. TN UNSPECIFIED [IFOSFAMIDE] [Suspect]
     Active Substance: IFOSFAMIDE
     Indication: ACUTE LYMPHOCYTIC LEUKAEMIA
     Dosage: 936 MG, CYCLICALLY
     Route: 042
     Dates: start: 20181222, end: 20181222
  2. TN UNSPECIFIED [METHOTREXATE] [Suspect]
     Active Substance: METHOTREXATE
     Indication: ACUTE LYMPHOCYTIC LEUKAEMIA
     Dosage: 5850 MG, CYCLICALLY
     Route: 042
     Dates: start: 20181115, end: 20181221
  3. TN UNSPECIFIED [METHOTREXATE] [Suspect]
     Active Substance: METHOTREXATE
     Dosage: 12 MG, CYCLICALLY
     Route: 037
     Dates: start: 20181221, end: 20181221
  4. ONCASPAR [Suspect]
     Active Substance: PEGASPARGASE
     Indication: ACUTE LYMPHOCYTIC LEUKAEMIA
     Dosage: 2925 KIU, CYCLICALLY
     Route: 042
     Dates: start: 20181204, end: 20181226
  5. URBASON [Concomitant]
     Active Substance: METHYLPREDNISOLONE
     Indication: PREMEDICATION
     Dosage: 10 MG, CYCLICALLY
     Route: 037
     Dates: start: 20181221, end: 20181221
  6. TN UNSPECIFIED [VINDESINE SULFATE] [Suspect]
     Active Substance: VINDESINE SULFATE
     Indication: ACUTE LYMPHOCYTIC LEUKAEMIA
     Dosage: 3.5 MG, CYCLICALLY
     Route: 042
     Dates: start: 20181221, end: 20181226
  7. LASIX [Concomitant]
     Active Substance: FUROSEMIDE
     Indication: PRODUCT USED FOR UNKNOWN INDICATION
     Dosage: 40 MG
     Route: 042
     Dates: start: 20181221, end: 20181222
  8. BACTRIM [Concomitant]
     Active Substance: SULFAMETHOXAZOLE\TRIMETHOPRIM
     Indication: PRODUCT USED FOR UNKNOWN INDICATION
     Dosage: 2 DF, CYCLICALLY
     Route: 048
  9. UROMITEXAN [Suspect]
     Active Substance: MESNA
     Indication: ACUTE LYMPHOCYTIC LEUKAEMIA
     Dosage: 350 MG, CYCLICALLY
     Route: 042
     Dates: start: 20181222, end: 20181222
  10. LEDERFOLIN [Concomitant]
     Active Substance: LEUCOVORIN CALCIUM
     Indication: PRODUCT USED FOR UNKNOWN INDICATION
     Dosage: 54 MG, CYCLICALLY
     Route: 042
     Dates: start: 20181223, end: 20181223
  11. TN UNSPECIFIED [IFOSFAMIDE] [Suspect]
     Active Substance: IFOSFAMIDE
     Dosage: 1872 MG, CYCLICALLY
     Route: 042
     Dates: start: 20181223, end: 20181224
  12. ANTRA [Concomitant]
     Active Substance: OMEPRAZOLE
     Indication: PRODUCT USED FOR UNKNOWN INDICATION
     Dosage: 40 MG
     Route: 042
  13. CIPROXIN [Concomitant]
     Active Substance: CIPROFLOXACIN
     Indication: PRODUCT USED FOR UNKNOWN INDICATION
     Dosage: 500 MG
     Route: 065
     Dates: start: 20181210
  14. MYCOSTATIN [Concomitant]
     Active Substance: NYSTATIN
     Indication: PRODUCT USED FOR UNKNOWN INDICATION
     Dosage: 15 ML
     Route: 048
  15. UROMITEXAN [Suspect]
     Active Substance: MESNA
     Dosage: 2100 MG, CYCLICALLY
     Route: 042
     Dates: start: 20181223, end: 20181224
  16. DECADRON [Concomitant]
     Active Substance: DEXAMETHASONE
     Indication: PRODUCT USED FOR UNKNOWN INDICATION
     Dosage: 23.4 MG
     Route: 042
     Dates: start: 20181221, end: 20181225
  17. MYELOSTIM [Concomitant]
     Active Substance: LENOGRASTIM
     Indication: NEUTROPENIA
     Dosage: 0.5 DF
     Route: 058
     Dates: start: 20181209, end: 20181215
  18. ZOFRAN [Concomitant]
     Active Substance: ONDANSETRON HYDROCHLORIDE
     Indication: PRODUCT USED FOR UNKNOWN INDICATION
     Dosage: 12 MG
     Route: 042
  19. DILATREND [Concomitant]
     Active Substance: CARVEDILOL
     Indication: PRODUCT USED FOR UNKNOWN INDICATION
     Dosage: 3.12 MG
     Route: 048

REACTIONS (4)
  - Oropharyngeal pain [Recovered/Resolved]
  - Pain in extremity [Recovered/Resolved]
  - Hypoalbuminaemia [Recovered/Resolved]
  - Gait disturbance [Recovered/Resolved]

NARRATIVE: CASE EVENT DATE: 20181224
